FAERS Safety Report 12602481 (Version 1)
Quarter: 2016Q3

REPORT INFORMATION
  Report Type: Spontaneous
  Country: US (occurrence: None)
  Receive Date: 20160727
  Receipt Date: 20160727
  Transmission Date: 20161109
  Serious: No
  Sender: FDA-Public Use
  Company Number: None

PATIENT
  Age: 23 Year
  Sex: Male

DRUGS (8)
  1. POTASSIUM CHLORIDE. [Concomitant]
     Active Substance: POTASSIUM CHLORIDE
  2. BOSENTAN. [Suspect]
     Active Substance: BOSENTAN
     Indication: PULMONARY HYPERTENSION
     Route: 048
     Dates: start: 20150215, end: 20150220
  3. CHLORHEXADINE [Suspect]
     Active Substance: CHLORHEXIDINE
  4. PROPOFOL. [Concomitant]
     Active Substance: PROPOFOL
  5. DIGOXIN. [Suspect]
     Active Substance: DIGOXIN
  6. SILDENAFIL. [Concomitant]
     Active Substance: SILDENAFIL
  7. FUROSEMIDE. [Concomitant]
     Active Substance: FUROSEMIDE
  8. LANSOPRAZOLE. [Concomitant]
     Active Substance: LANSOPRAZOLE

REACTIONS (4)
  - Alanine aminotransferase increased [None]
  - Liver function test increased [None]
  - Blood bilirubin increased [None]
  - Aspartate aminotransferase increased [None]

NARRATIVE: CASE EVENT DATE: 20150216
